FAERS Safety Report 25026071 (Version 1)
Quarter: 2025Q1

REPORT INFORMATION
  Report Type: Spontaneous
  Country: US (occurrence: US)
  Receive Date: 20250301
  Receipt Date: 20250301
  Transmission Date: 20250408
  Serious: No
  Sender: ALEXION PHARMACEUTICALS
  Company Number: US-AstraZeneca-CH-00818384A

PATIENT

DRUGS (1)
  1. FARXIGA [Suspect]
     Active Substance: DAPAGLIFLOZIN PROPANEDIOL
     Route: 065

REACTIONS (6)
  - Adverse drug reaction [Unknown]
  - Pollakiuria [Unknown]
  - Dry mouth [Unknown]
  - Hernia pain [Unknown]
  - Pain [Unknown]
  - Product dose omission issue [Unknown]
